FAERS Safety Report 16164154 (Version 2)
Quarter: 2019Q2

REPORT INFORMATION
  Report Type: Report from Study
  Country: US (occurrence: US)
  Receive Date: 20190405
  Receipt Date: 20190426
  Transmission Date: 20190711
  Serious: Yes (Other)
  Sender: FDA-Public Use
  Company Number: US-JNJFOC-20190339193

PATIENT
  Age: 80 Year
  Sex: Female

DRUGS (1)
  1. IMBRUVICA [Suspect]
     Active Substance: IBRUTINIB
     Indication: CHRONIC LYMPHOCYTIC LEUKAEMIA
     Route: 048
     Dates: start: 20190220

REACTIONS (7)
  - Dry skin [Recovering/Resolving]
  - White blood cell count decreased [Unknown]
  - Pneumonia [Unknown]
  - Blood lactate dehydrogenase increased [Unknown]
  - Infectious pleural effusion [Not Recovered/Not Resolved]
  - Haemoglobin decreased [Unknown]
  - White blood cell count abnormal [Unknown]

NARRATIVE: CASE EVENT DATE: 20190320
